FAERS Safety Report 17186815 (Version 2)
Quarter: 2020Q1

REPORT INFORMATION
  Report Type: Spontaneous
  Country: US (occurrence: US)
  Receive Date: 20191220
  Receipt Date: 20200114
  Transmission Date: 20200409
  Serious: No
  Sender: FDA-Public Use
  Company Number: US-B.I. PHARMACEUTICALS,INC./RIDGEFIELD-2019-US-120887

PATIENT
  Sex: Male

DRUGS (1)
  1. SPIRIVA [Suspect]
     Active Substance: TIOTROPIUM BROMIDE MONOHYDRATE
     Indication: PRODUCT USED FOR UNKNOWN INDICATION
     Dosage: 2 INHALATIONS ON ONE CAPSULE ONCE DAILY
     Route: 055
     Dates: start: 2019

REACTIONS (3)
  - Overdose [Unknown]
  - Product physical issue [Unknown]
  - Product quality issue [Unknown]

NARRATIVE: CASE EVENT DATE: 201912
